FAERS Safety Report 8502747-4 (Version None)
Quarter: 2012Q3

REPORT INFORMATION
  Report Type: 
  Country: None (occurrence: None)
  Receive Date: 20120711
  Receipt Date: 20120705
  Transmission Date: 20120928
  Serious: Yes (Death, Hospitalization)
  Sender: FDA-Public Use
  Company Number: CA-JNJFOC-20120701790

PATIENT
  Sex: Male
  Weight: 98 kg

DRUGS (6)
  1. COUMADIN [Concomitant]
     Route: 048
  2. REMICADE [Suspect]
     Indication: PSORIATIC ARTHROPATHY
     Dosage: 0, 2, 6 AND 8 WEEKS
     Route: 042
     Dates: start: 20091127
  3. REMICADE [Suspect]
     Route: 042
     Dates: end: 20120424
  4. METHOTREXATE [Suspect]
     Indication: RHEUMATOID ARTHRITIS
     Route: 048
  5. REMICADE [Suspect]
     Indication: RHEUMATOID ARTHRITIS
     Route: 042
     Dates: end: 20120424
  6. REMICADE [Suspect]
     Dosage: 0, 2, 6 AND 8 WEEKS
     Route: 042
     Dates: start: 20091127

REACTIONS (4)
  - TOXICITY TO VARIOUS AGENTS [None]
  - PNEUMONIA [None]
  - THROMBOSIS [None]
  - RESPIRATORY FAILURE [None]
